FAERS Safety Report 21388481 (Version 3)
Quarter: 2022Q4

REPORT INFORMATION
  Report Type: Spontaneous
  Country: JP (occurrence: JP)
  Receive Date: 20220928
  Receipt Date: 20221123
  Transmission Date: 20230113
  Serious: Yes (Hospitalization, Other)
  Sender: FDA-Public Use
  Company Number: JP-MSD-M2022-40676

PATIENT
  Age: 77 Year
  Sex: Male
  Weight: 63 kg

DRUGS (4)
  1. KEYTRUDA [Suspect]
     Active Substance: PEMBROLIZUMAB
     Indication: Lung adenocarcinoma stage IV
     Dosage: 200 MILLIGRAM, Q3W
     Route: 041
     Dates: start: 20220831, end: 20220831
  2. CARBOPLATIN [Suspect]
     Active Substance: CARBOPLATIN
     Indication: Lung adenocarcinoma stage IV
     Dosage: 400 MILLIGRAM, ONCE
     Route: 041
     Dates: start: 20220831, end: 20220831
  3. ALIMTA [Suspect]
     Active Substance: PEMETREXED DISODIUM
     Indication: Lung adenocarcinoma stage IV
     Dosage: 700 MILLIGRAM, ONCE
     Route: 041
     Dates: start: 20220831, end: 20220831
  4. VITAMINS [Concomitant]
     Active Substance: VITAMINS
     Dosage: 1 GRAM, QD
     Route: 065
     Dates: start: 20220824

REACTIONS (2)
  - Cholangitis [Recovering/Resolving]
  - Rash [Recovering/Resolving]

NARRATIVE: CASE EVENT DATE: 20220908
